FAERS Safety Report 10486021 (Version 1)
Quarter: 2014Q4

REPORT INFORMATION
  Report Type: Report from Study
  Country: US (occurrence: US)
  Receive Date: 20141001
  Receipt Date: 20141001
  Transmission Date: 20150528
  Serious: No
  Sender: FDA-Public Use
  Company Number: US-AMGEN INC.-USASP2014073962

PATIENT
  Age: 16 Year
  Sex: Female
  Weight: 57.6 kg

DRUGS (1)
  1. ENBREL [Suspect]
     Active Substance: ETANERCEPT
     Indication: PSORIASIS
     Dosage: 50 MG, Q2WK
     Route: 058
     Dates: end: 201312

REACTIONS (1)
  - Therapeutic response decreased [Recovered/Resolved with Sequelae]
